FAERS Safety Report 24279842 (Version 1)
Quarter: 2024Q3

REPORT INFORMATION
  Report Type: Spontaneous
  Country: SE (occurrence: SE)
  Receive Date: 20240904
  Receipt Date: 20240904
  Transmission Date: 20241016
  Serious: Yes (Disabling)
  Sender: TAKEDA
  Company Number: None

PATIENT
  Sex: Male
  Weight: 99 kg

DRUGS (5)
  1. LISDEXAMFETAMINE DIMESYLATE [Suspect]
     Active Substance: LISDEXAMFETAMINE DIMESYLATE
     Indication: Attention deficit hyperactivity disorder
     Dosage: 70 MILLIGRAM, Q12H
     Route: 048
     Dates: start: 20180430
  2. VALPROIC ACID [Concomitant]
     Active Substance: VALPROIC ACID
     Dosage: 1000 MILLIGRAM, QD
     Route: 048
     Dates: start: 20180717
  3. VALPROIC ACID [Concomitant]
     Active Substance: VALPROIC ACID
     Dosage: 500 MILLIGRAM, QD
     Route: 048
     Dates: start: 20180717
  4. ESCITALOPRAM OXALATE [Concomitant]
     Active Substance: ESCITALOPRAM OXALATE
     Dosage: 20 MILLIGRAM, QD
     Route: 065
  5. ZOLPIDEM TARTRATE [Concomitant]
     Active Substance: ZOLPIDEM TARTRATE
     Dosage: 10 MILLIGRAM
     Route: 048
     Dates: start: 20191217

REACTIONS (2)
  - Off label use [Not Recovered/Not Resolved]
  - Heart failure with reduced ejection fraction [Not Recovered/Not Resolved]

NARRATIVE: CASE EVENT DATE: 20180430
